FAERS Safety Report 4323351-8 (Version None)
Quarter: 2004Q1

REPORT INFORMATION
  Report Type: 
  Country: None (occurrence: None)
  Receive Date: 20040324
  Receipt Date: 20040324
  Transmission Date: 20041129
  Serious: Yes (Hospitalization)
  Sender: FDA-Public Use
  Company Number: None

PATIENT
  Sex: Female
  Weight: 53.978 kg

DRUGS (5)
  1. GEMCITABINE 1500 MG/M2 [Suspect]
     Indication: PANCREATIC CARCINOMA
     Dosage: 2265 MG QW X3 INTRAVENOUS
     Route: 042
     Dates: start: 20040302, end: 20040309
  2. FENTANYL [Concomitant]
  3. OXYCODONE [Concomitant]
  4. MEGACE [Concomitant]
  5. KYTRIL [Concomitant]

REACTIONS (5)
  - ASTHENIA [None]
  - DEHYDRATION [None]
  - DEPRESSED LEVEL OF CONSCIOUSNESS [None]
  - MARKEDLY REDUCED DIETARY INTAKE [None]
  - PLATELET COUNT DECREASED [None]
